FAERS Safety Report 10252334 (Version 4)
Quarter: 2015Q4

REPORT INFORMATION
  Report Type: Report from Study
  Country: US (occurrence: US)
  Receive Date: 20140623
  Receipt Date: 20151228
  Transmission Date: 20160304
  Serious: Yes (Hospitalization, Other)
  Sender: FDA-Public Use
  Company Number: US-SA-2014SA080991

PATIENT
  Age: 68 Year
  Sex: Female

DRUGS (2)
  1. CEREZYME [Suspect]
     Active Substance: IMIGLUCERASE
     Indication: GAUCHER^S DISEASE
     Dosage: DOSE:4000 UNIT(S)
     Route: 042
     Dates: start: 19960923
  2. HEPARIN [Suspect]
     Active Substance: HEPARIN SODIUM
     Route: 065

REACTIONS (24)
  - Pneumonia [Unknown]
  - Respiratory arrest [Recovering/Resolving]
  - Acute respiratory failure [Unknown]
  - Knee arthroplasty [Recovering/Resolving]
  - Nerve injury [Unknown]
  - Musculoskeletal pain [Not Recovered/Not Resolved]
  - Fall [Unknown]
  - Gait disturbance [Unknown]
  - Asthenia [Unknown]
  - Fatigue [Unknown]
  - Heparin-induced thrombocytopenia [Unknown]
  - Back pain [Unknown]
  - Fall [Unknown]
  - Joint injury [Not Recovered/Not Resolved]
  - Joint range of motion decreased [Not Recovered/Not Resolved]
  - Neck pain [Not Recovered/Not Resolved]
  - Lower respiratory tract infection [Unknown]
  - Spinal fusion surgery [Unknown]
  - Balance disorder [Unknown]
  - Eyelid haematoma [Unknown]
  - Bone pain [Unknown]
  - Pulmonary embolism [Unknown]
  - Peroneal nerve palsy [Recovering/Resolving]
  - Mobility decreased [Unknown]

NARRATIVE: CASE EVENT DATE: 2007
